FAERS Safety Report 25460545 (Version 1)
Quarter: 2025Q2

REPORT INFORMATION
  Report Type: Spontaneous
  Country: US (occurrence: US)
  Receive Date: 20250620
  Receipt Date: 20250620
  Transmission Date: 20250716
  Serious: No
  Sender: AJANTA PHARMA USA INC
  Company Number: US-AJANTA-2025AJA00080

PATIENT
  Age: 78 Year
  Sex: Male
  Weight: 165 kg

DRUGS (10)
  1. CHOLESTYRAMINE [Suspect]
     Active Substance: CHOLESTYRAMINE
     Indication: Diarrhoea
     Route: 048
     Dates: start: 20250529
  2. ALLOPURINOL [Concomitant]
     Active Substance: ALLOPURINOL
  3. AMLODIPINE BESYLATE [Concomitant]
     Active Substance: AMLODIPINE BESYLATE
  4. ATORVASTATIN [Concomitant]
     Active Substance: ATORVASTATIN
  5. LATANOPROST [Concomitant]
     Active Substance: LATANOPROST
  6. METOPROLOL [Concomitant]
     Active Substance: METOPROLOL
  7. RAMIPRIL [Concomitant]
     Active Substance: RAMIPRIL
  8. Tamsulosin-HCl [Concomitant]
  9. Borvo-Timolol [Concomitant]
  10. OMEPRAZOLE [Concomitant]
     Active Substance: OMEPRAZOLE

REACTIONS (4)
  - Throat irritation [Not Recovered/Not Resolved]
  - Product use in unapproved indication [Unknown]
  - Product physical consistency issue [Unknown]
  - Product substitution issue [Unknown]

NARRATIVE: CASE EVENT DATE: 20250529
